FAERS Safety Report 7458643 (Version 9)
Quarter: 2012Q4

REPORT INFORMATION
  Report Type: Report from Study
  Country: CA (occurrence: CA)
  Receive Date: 20100708
  Receipt Date: 20120918
  Transmission Date: 20130627
  Serious: Yes (Hospitalization, Other)
  Sender: FDA-Public Use
  Company Number: CA-BRISTOL-MYERS SQUIBB COMPANY-15178023

PATIENT
  Age: 50 Year
  Sex: Female

DRUGS (10)
  1. ORENCIA [Suspect]
     Indication: RHEUMATOID ARTHRITIS
     Dosage: Last dose:13Dec10,03Oct11,23May12;1L66305;Sep14,22Jn12,6Sp12 ,inf:45
1L66305,Exp:SE14,intp:18Jl12
     Route: 042
     Dates: start: 20090402
  2. METHOTREXATE [Concomitant]
  3. PREDNISONE [Concomitant]
  4. CELEBREX [Concomitant]
  5. SINGULAIR [Concomitant]
  6. ACETAMINOPHEN [Concomitant]
  7. MAXALT [Concomitant]
  8. NEXIUM [Concomitant]
  9. ENBREL [Concomitant]
  10. MICARDIS [Concomitant]

REACTIONS (5)
  - Chest pain [Not Recovered/Not Resolved]
  - Asthma [Recovered/Resolved]
  - Abscess [Recovering/Resolving]
  - Syncope [Recovering/Resolving]
  - Bronchitis [Not Recovered/Not Resolved]
